FAERS Safety Report 6665805-5 (Version None)
Quarter: 2010Q2

REPORT INFORMATION
  Report Type: 
  Country: None (occurrence: None)
  Receive Date: 20100402
  Receipt Date: 20100325
  Transmission Date: 20101027
  Serious: Yes (Other)
  Sender: FDA-Public Use
  Company Number: US-PFIZER INC-2010038563

PATIENT
  Sex: Female
  Weight: 68.027 kg

DRUGS (8)
  1. XANAX [Suspect]
     Indication: SLEEP DISORDER
  2. AMLODIPINE BESYLATE [Suspect]
     Indication: BLOOD PRESSURE
     Dosage: 5 MG DAILY
     Route: 048
     Dates: start: 20100317, end: 20100322
  3. LISINOPRIL [Suspect]
     Indication: BLOOD PRESSURE
     Dosage: 10 MG DAILY
     Dates: start: 20100323
  4. FEMARA [Concomitant]
     Dosage: 2.5 MG DAILY
     Route: 048
  5. FOSAMAX [Concomitant]
     Dosage: 70 MG, WEEKLY
     Route: 048
  6. DETROL LA [Concomitant]
     Dosage: 4 MG, ALTERNATE DAY
     Route: 048
  7. PRAVASTATIN [Concomitant]
     Dosage: 30 MG DAILY
  8. ACETYLSALICYLIC ACID [Concomitant]
     Dosage: 81 MG DAILY

REACTIONS (6)
  - AGITATION [None]
  - DRUG INEFFECTIVE [None]
  - FATIGUE [None]
  - HYPERTENSION [None]
  - INSOMNIA [None]
  - PAIN [None]
